FAERS Safety Report 16127963 (Version 2)
Quarter: 2020Q2

REPORT INFORMATION
  Report Type: Spontaneous
  Country: CO (occurrence: CO)
  Receive Date: 20190328
  Receipt Date: 20200417
  Transmission Date: 20200713
  Serious: Yes (Other)
  Sender: FDA-Public Use
  Company Number: CO-AMGEN-COLSP2015034389

PATIENT
  Age: 53 Year
  Sex: Female

DRUGS (1)
  1. ENBREL [Suspect]
     Active Substance: ETANERCEPT
     Indication: PSORIASIS
     Dosage: 50 MG, WEEKLY
     Route: 058
     Dates: start: 2014, end: 201903

REACTIONS (4)
  - Headache [Not Recovered/Not Resolved]
  - Injection site injury [Unknown]
  - Condition aggravated [Not Recovered/Not Resolved]
  - Hernia [Recovering/Resolving]

NARRATIVE: CASE EVENT DATE: 2015
